FAERS Safety Report 8376473-9 (Version None)
Quarter: 2012Q2

REPORT INFORMATION
  Report Type: 
  Country: None (occurrence: None)
  Receive Date: 20120522
  Receipt Date: 20120514
  Transmission Date: 20120825
  Serious: Yes (Hospitalization)
  Sender: FDA-Public Use
  Company Number: US-VERTEX PHARMACEUTICALS INC.-AE-2012-007118

PATIENT
  Sex: Female
  Weight: 46.3 kg

DRUGS (3)
  1. PEGASYS [Concomitant]
     Indication: HEPATITIS C
     Route: 058
     Dates: end: 20120329
  2. RIBAVIRIN [Concomitant]
     Indication: HEPATITIS C
     Route: 048
     Dates: end: 20120329
  3. INCIVEK [Suspect]
     Indication: HEPATITIS C
     Route: 048
     Dates: end: 20120329

REACTIONS (4)
  - DIZZINESS [None]
  - FATIGUE [None]
  - ASTHENIA [None]
  - DIARRHOEA [None]
